FAERS Safety Report 4551367-5 (Version None)
Quarter: 2005Q1

REPORT INFORMATION
  Report Type: 
  Country: None (occurrence: None)
  Receive Date: 20050107
  Receipt Date: 20041224
  Transmission Date: 20050727
  Serious: Yes (Life-Threatening)
  Sender: FDA-Public Use
  Company Number: 2004AC01098

PATIENT
  Age: 29 Year
  Sex: Male

DRUGS (3)
  1. SEROQUEL [Suspect]
     Indication: SCHIZOPHRENIA
     Dosage: 500 MG DAILY PO
     Route: 048
     Dates: start: 20040701, end: 20041224
  2. CLOZAPIN   NEURAXPHARM [Concomitant]
  3. PAROXETINE HCL [Concomitant]

REACTIONS (1)
  - CHRONIC MYELOID LEUKAEMIA [None]
